FAERS Safety Report 9730027 (Version 5)
Quarter: 2015Q3

REPORT INFORMATION
  Report Type: Report from Study
  Country: JP (occurrence: JP)
  Receive Date: 20131204
  Receipt Date: 20150929
  Transmission Date: 20151125
  Serious: Yes (Hospitalization)
  Sender: FDA-Public Use
  Company Number: JP-PFIZER INC-2013336449

PATIENT
  Age: 72 Year
  Sex: Male
  Weight: 61 kg

DRUGS (12)
  1. PROTECADIN [Concomitant]
     Active Substance: LAFUTIDINE
     Indication: GASTRITIS PROPHYLAXIS
     Dosage: 10 MG, 1X/DAY
     Route: 048
     Dates: start: 199712
  2. TOFACITINIB CITRATE [Suspect]
     Active Substance: TOFACITINIB CITRATE
     Indication: PSORIASIS
     Dosage: 10 MG, 2X/DAY
     Route: 048
     Dates: start: 20130107, end: 20131003
  3. TOFACITINIB CITRATE [Suspect]
     Active Substance: TOFACITINIB CITRATE
     Dosage: 5 MG, 2X/DAY
     Route: 048
     Dates: start: 20131004, end: 20131122
  4. VEGAMOX [Concomitant]
     Active Substance: MOXIFLOXACIN HYDROCHLORIDE
     Dosage: 1 DROP, 3X/DAY
     Route: 047
     Dates: start: 20131121, end: 20131227
  5. AMLODIN [Concomitant]
     Active Substance: AMLODIPINE BESYLATE
     Indication: HYPERTENSION
     Dosage: UNK
     Dates: start: 200808
  6. ASPIRIN. [Concomitant]
     Active Substance: ASPIRIN
     Dosage: 100 MG, 1X/DAY
     Route: 048
     Dates: start: 201012, end: 20131113
  7. RINDERON V [Concomitant]
     Active Substance: BETAMETHASONE VALERATE
     Dosage: 0.1 %, 1 DROP, 4X/DAY
     Route: 047
     Dates: start: 20130930, end: 20131121
  8. COSOPT [Concomitant]
     Active Substance: DORZOLAMIDE HYDROCHLORIDE\TIMOLOL MALEATE
     Dosage: 1 DROP , 2X/DAY
     Route: 047
     Dates: start: 20130930, end: 20131121
  9. ALLORIN [Concomitant]
     Indication: HYPERURICAEMIA
     Dosage: 100 MG, 1X/DAY
     Route: 048
     Dates: start: 199712
  10. ASPARA K [Concomitant]
     Active Substance: POTASSIUM ASPARTATE
     Dosage: 300 MG, 1X/DAY
     Route: 048
     Dates: start: 20131002, end: 20140106
  11. XALATAN [Concomitant]
     Active Substance: LATANOPROST
     Dosage: 1 DROP, 1X/DAY
     Route: 047
     Dates: start: 20130930, end: 20131121
  12. DIOVAN [Concomitant]
     Active Substance: VALSARTAN
     Indication: HYPERTENSION
     Dosage: UNK
     Dates: start: 200808

REACTIONS (3)
  - Cataract [Recovering/Resolving]
  - Condition aggravated [Recovering/Resolving]
  - Glaucoma [Recovering/Resolving]

NARRATIVE: CASE EVENT DATE: 20130930
